FAERS Safety Report 4872739-5 (Version None)
Quarter: 2006Q1

REPORT INFORMATION
  Report Type: 
  Country: None (occurrence: None)
  Receive Date: 20060103
  Receipt Date: 20051215
  Transmission Date: 20060701
  Serious: Yes (Hospitalization)
  Sender: FDA-Public Use
  Company Number: US200512003399

PATIENT
  Age: 67 Year
  Sex: Male
  Weight: 119 kg

DRUGS (6)
  1. PEMETREXED (PEMETREXED) VIAL [Suspect]
     Dosage: 1180 MG, INTRAVENOUS
     Route: 042
     Dates: start: 20050922, end: 20050922
  2. PEMETREXED (PEMETREXED) VIAL [Suspect]
     Dosage: 1180 MG, INTRAVENOUS
     Route: 042
     Dates: start: 20051209, end: 20051209
  3. CARBOPLATIN [Concomitant]
  4. FOLIC ACID [Concomitant]
  5. VITAMIN B12 [Concomitant]
  6. LEXAPRO [Concomitant]

REACTIONS (1)
  - TRANSIENT ISCHAEMIC ATTACK [None]
